FAERS Safety Report 9332908 (Version 1)
Quarter: 2013Q2

REPORT INFORMATION
  Report Type: Spontaneous
  Country: DE (occurrence: None)
  Receive Date: 20130603
  Receipt Date: 20130603
  Transmission Date: 20140414
  Serious: Yes (Hospitalization, Other)
  Sender: FDA-Public Use
  Company Number: 2013P1006322

PATIENT
  Age: 61 Year
  Sex: Male

DRUGS (4)
  1. CIPROBAY [Suspect]
     Route: 048
     Dates: start: 20130111, end: 20130112
  2. BELOC ZOK (METOPROLOL SUCCINATE) [Suspect]
     Indication: HYPERTENSION
     Route: 048
  3. TAZOBAC [Suspect]
     Indication: EMPYEMA
     Route: 042
     Dates: start: 20130111, end: 20130113
  4. TAUROLIN [Suspect]
     Indication: WOUND TREATMENT
     Route: 042
     Dates: start: 20130111, end: 20130113

REACTIONS (1)
  - Toxic epidermal necrolysis [None]
